FAERS Safety Report 4280047-9 (Version None)
Quarter: 2004Q1

REPORT INFORMATION
  Report Type: 
  Country: None (occurrence: None)
  Receive Date: 20040126
  Receipt Date: 20040114
  Transmission Date: 20041129
  Serious: Yes (Hospitalization)
  Sender: FDA-Public Use
  Company Number: 04P-151-0247221-00

PATIENT
  Age: 55 Year
  Sex: Female
  Weight: 105 kg

DRUGS (6)
  1. TRICOR [Suspect]
     Indication: HYPERLIPIDAEMIA
     Dosage: 200 MG, 1 IN 1 D, ORAL
     Route: 048
     Dates: end: 20031113
  2. EZETROL [Suspect]
     Dosage: 10 MG, 1 IN 1 D
     Dates: start: 20031106, end: 20031113
  3. LESCOL [Suspect]
     Dosage: 80 MG, 1 IN 1 D
     Dates: end: 20031113
  4. CLOZAPINE [Suspect]
     Dosage: 80 MG, 1 IN 1 D
  5. ESOMEPRAZOLE [Concomitant]
  6. METOCLOPRAMIDE HYDROCHLORIDE [Concomitant]

REACTIONS (3)
  - DRUG INTERACTION [None]
  - MYOPATHY [None]
  - RHABDOMYOLYSIS [None]
